FAERS Safety Report 6906748-9 (Version None)
Quarter: 2010Q3

REPORT INFORMATION
  Report Type: 
  Country: None (occurrence: None)
  Receive Date: 20100804
  Receipt Date: 20100728
  Transmission Date: 20110219
  Serious: Yes (Hospitalization)
  Sender: FDA-Public Use
  Company Number: BR-ABBOTT-10P-020-0660666-00

PATIENT
  Sex: Female
  Weight: 70 kg

DRUGS (5)
  1. HUMIRA [Suspect]
     Indication: RHEUMATOID ARTHRITIS
     Route: 058
     Dates: start: 20060406
  2. PANTOPRAZOLE [Concomitant]
     Indication: ULCER
     Route: 048
  3. LEFLUNOMIDE [Concomitant]
     Indication: RHEUMATOID ARTHRITIS
     Route: 048
  4. BETACARDIO PLUS [Concomitant]
     Indication: HYPERTENSION
     Route: 048
  5. TRAMADOL 50MG, NIMESULIDE 150MG, FAMOTIDINE 20MG [Concomitant]
     Indication: PAIN
     Route: 048

REACTIONS (9)
  - ABDOMINAL PAIN UPPER [None]
  - COLITIS [None]
  - COUGH [None]
  - DIARRHOEA [None]
  - FLATULENCE [None]
  - INFLUENZA [None]
  - MALAISE [None]
  - RHINITIS [None]
  - WHEEZING [None]
